FAERS Safety Report 23359861 (Version 3)
Quarter: 2024Q2

REPORT INFORMATION
  Report Type: Spontaneous
  Country: PE (occurrence: PE)
  Receive Date: 20240103
  Receipt Date: 20240429
  Transmission Date: 20240716
  Serious: Yes (Hospitalization)
  Sender: FDA-Public Use
  Company Number: PE-NOVOPROD-1148520

PATIENT
  Age: 63 Year
  Sex: Male
  Weight: 115.5 kg

DRUGS (5)
  1. SAXENDA [Suspect]
     Active Substance: LIRAGLUTIDE
     Indication: Overweight
     Dosage: UNK
     Dates: start: 202310
  2. SAXENDA [Suspect]
     Active Substance: LIRAGLUTIDE
     Dosage: 0.6 MG FOR 15 DAYS
     Dates: start: 20240117
  3. SAXENDA [Suspect]
     Active Substance: LIRAGLUTIDE
     Dosage: 3 MG
  4. SAXENDA [Suspect]
     Active Substance: LIRAGLUTIDE
     Dosage: UNK (INCREASED DOSE)
  5. SAXENDA [Suspect]
     Active Substance: LIRAGLUTIDE
     Dosage: 1.2 MG

REACTIONS (12)
  - COVID-19 [Unknown]
  - Pain [Not Recovered/Not Resolved]
  - Tinnitus [Not Recovered/Not Resolved]
  - Defaecation urgency [Not Recovered/Not Resolved]
  - Palpitations [Not Recovered/Not Resolved]
  - Rectal tenesmus [Unknown]
  - Gastrointestinal disorder [Unknown]
  - Haematochezia [Not Recovered/Not Resolved]
  - Headache [Not Recovered/Not Resolved]
  - Flatulence [Not Recovered/Not Resolved]
  - Abdominal pain [Not Recovered/Not Resolved]
  - Eructation [Not Recovered/Not Resolved]

NARRATIVE: CASE EVENT DATE: 20231001
